FAERS Safety Report 19785623 (Version 2)
Quarter: 2021Q3

REPORT INFORMATION
  Report Type: Spontaneous
  Country: VN (occurrence: VN)
  Receive Date: 20210903
  Receipt Date: 20210908
  Transmission Date: 20211014
  Serious: No
  Sender: FDA-Public Use
  Company Number: VN-B.I. PHARMACEUTICALS,INC./RIDGEFIELD-2021-BI-124108

PATIENT
  Age: 55 Year
  Sex: Male
  Weight: 48 kg

DRUGS (2)
  1. GILOTRIF [Suspect]
     Active Substance: AFATINIB
     Indication: DRUG THERAPY
  2. GILOTRIF [Suspect]
     Active Substance: AFATINIB

REACTIONS (5)
  - Drug resistance [Recovered/Resolved]
  - Intracranial pressure increased [Unknown]
  - Product use issue [Unknown]
  - Headache [Recovered/Resolved]
  - Central nervous system lesion [Unknown]

NARRATIVE: CASE EVENT DATE: 202005
